FAERS Safety Report 11437532 (Version 1)
Quarter: 2015Q3

REPORT INFORMATION
  Report Type: Spontaneous
  Country: US (occurrence: US)
  Receive Date: 20150821
  Receipt Date: 20150821
  Transmission Date: 20151125
  Serious: No
  Sender: FDA-Public Use
  Company Number: US-ELI_LILLY_AND_COMPANY-US200705003606

PATIENT
  Sex: Female

DRUGS (2)
  1. XANAX [Concomitant]
     Active Substance: ALPRAZOLAM
  2. CYMBALTA [Suspect]
     Active Substance: DULOXETINE HYDROCHLORIDE
     Dosage: UNK, EACH EVENING
     Route: 048
     Dates: start: 20070508, end: 20070509

REACTIONS (2)
  - Dyspnoea [Unknown]
  - Rash [Unknown]

NARRATIVE: CASE EVENT DATE: 20070508
